FAERS Safety Report 16439518 (Version 1)
Quarter: 2019Q3

REPORT INFORMATION
  Report Type: Spontaneous
  Country: US (occurrence: US)
  Receive Date: 20190614
  Receipt Date: 20190614
  Transmission Date: 20191004
  Serious: Yes (Other)
  Sender: FDA-Public Use
  Company Number: None

PATIENT
  Age: 87 Year
  Sex: Female
  Weight: 73.8 kg

DRUGS (13)
  1. VENLAFAXINE 75 MG ER [Concomitant]
     Active Substance: VENLAFAXINE HYDROCHLORIDE
  2. PAROXETINE. [Concomitant]
     Active Substance: PAROXETINE
  3. HCTZ 25 MG [Concomitant]
  4. VITAMIN D [Concomitant]
     Active Substance: VITAMIN D NOS
  5. VITAMIN B12 1000 MCG [Concomitant]
  6. OMEPRAZOLE 20 MG [Concomitant]
     Active Substance: OMEPRAZOLE
  7. ABILIFY [Suspect]
     Active Substance: ARIPIPRAZOLE
     Indication: DEPRESSION
     Route: 048
     Dates: start: 20190531, end: 20190613
  8. SYNTHROID [Concomitant]
     Active Substance: LEVOTHYROXINE SODIUM
  9. BENAZEPRIL [Concomitant]
     Active Substance: BENAZEPRIL HYDROCHLORIDE
  10. ATORVASTATIN 10 MG [Concomitant]
     Active Substance: ATORVASTATIN
  11. WELCHOL 625 MG [Concomitant]
  12. AMLODIPINE 10 MG [Concomitant]
     Active Substance: AMLODIPINE BESYLATE
  13. EYE VITAMIN [Concomitant]

REACTIONS (2)
  - Mobility decreased [None]
  - Bone pain [None]

NARRATIVE: CASE EVENT DATE: 20190613
